FAERS Safety Report 7371257-2 (Version None)
Quarter: 2011Q1

REPORT INFORMATION
  Report Type: 
  Country: None (occurrence: None)
  Receive Date: 20110316
  Receipt Date: 20110302
  Transmission Date: 20110831
  Serious: Yes (Hospitalization)
  Sender: FDA-Public Use
  Company Number: 028606

PATIENT
  Sex: Female

DRUGS (4)
  1. REBAMIPIDE (MUCOSTA TABLETS (REBAMIPIDE)) [Suspect]
     Indication: PROPHYLAXIS
     Dosage: (200 MG ORAL)
     Route: 048
     Dates: start: 20090422, end: 20110217
  2. FOLIAMIN (FOLIAMIN)   (5 MG ORAL) [Suspect]
     Indication: RHEUMATOID ARTHRITIS
     Dosage: (5 MG ORAL)
     Route: 048
     Dates: start: 20080615, end: 20110213
  3. CERTOLIZUMAB PEGOL (CERTOLIZUMAB PEGOL) [Suspect]
     Indication: RHEUMATOID ARTHRITIS
     Dosage: (200 MG 1X/2 WEEKS, SUBCUTANEOUS),
     Route: 058
     Dates: start: 20090715, end: 20110124
  4. RHEUMATREX [Suspect]
     Indication: RHEUMATOID ARTHRITIS
     Dosage: (8 MG 1X/WEEK ORAL)
     Route: 048
     Dates: start: 20080711, end: 20110212

REACTIONS (1)
  - SALIVARY GLAND NEOPLASM [None]
